FAERS Safety Report 9519936 (Version 4)
Quarter: 2013Q4

REPORT INFORMATION
  Report Type: Spontaneous
  Country: US (occurrence: US)
  Receive Date: 20130912
  Receipt Date: 20131118
  Transmission Date: 20140711
  Serious: Yes (Hospitalization, Disabling, Other)
  Sender: FDA-Public Use
  Company Number: US-009507513-1206USA00824

PATIENT
  Sex: Female
  Weight: 54.42 kg

DRUGS (3)
  1. FOSAMAX [Suspect]
     Indication: OSTEOPENIA
     Dosage: 70 MG, UNK
     Route: 048
     Dates: start: 20061009, end: 200903
  2. NEXIUM [Concomitant]
     Indication: GASTROOESOPHAGEAL REFLUX DISEASE
     Dosage: UNK
     Dates: start: 2000, end: 201008
  3. FLUOXETINE [Concomitant]
     Dosage: UNK
     Dates: start: 1995

REACTIONS (9)
  - Femur fracture [Recovered/Resolved]
  - Osteoporosis [Not Recovered/Not Resolved]
  - Medical device removal [Not Recovered/Not Resolved]
  - Intramedullary rod insertion [Unknown]
  - Menopausal depression [Unknown]
  - Fatigue [Unknown]
  - Laryngeal mass [Unknown]
  - Glaucoma [Unknown]
  - Tooth extraction [Unknown]
